FAERS Safety Report 21056687 (Version 1)
Quarter: 2022Q3

REPORT INFORMATION
  Report Type: Spontaneous
  Country: CN (occurrence: CN)
  Receive Date: 20220708
  Receipt Date: 20220708
  Transmission Date: 20221027
  Serious: Yes (Other)
  Sender: FDA-Public Use
  Company Number: None

PATIENT
  Age: 61 Year
  Sex: Male

DRUGS (2)
  1. CYCLOPHOSPHAMIDE [Suspect]
     Active Substance: CYCLOPHOSPHAMIDE
     Indication: Plasma cell myeloma
     Dosage: 2.8 G, QD, (DOSAGE FORM: POWDER INJECTION), CYCLOPHOSPHAMIDE FOR INJECTION 2.8G + 0.9% NS 250ML
     Route: 041
     Dates: start: 20220413, end: 20220414
  2. SODIUM CHLORIDE [Suspect]
     Active Substance: SODIUM CHLORIDE
     Indication: Medication dilution
     Dosage: 250 ML, QD, CYCLOPHOSPHAMIDE FOR INJECTION 2.8G + 0.9% NS 250ML
     Route: 041
     Dates: start: 20220413, end: 20220414

REACTIONS (3)
  - Myelosuppression [Recovering/Resolving]
  - Haemoglobin decreased [Recovering/Resolving]
  - White blood cell count decreased [Recovering/Resolving]

NARRATIVE: CASE EVENT DATE: 20220419
